FAERS Safety Report 7741054 (Version 4)
Quarter: 2016Q1

REPORT INFORMATION
  Report Type: Spontaneous
  Country: FR (occurrence: FR)
  Receive Date: 20101228
  Receipt Date: 20160122
  Transmission Date: 20160526
  Serious: Yes (Other)
  Sender: FDA-Public Use
  Company Number: FR-BRISTOL-MYERS SQUIBB COMPANY-15408750

PATIENT
  Age: 24 Year
  Sex: Female
  Weight: 78 kg

DRUGS (1)
  1. BARACLUDE [Suspect]
     Active Substance: ENTECAVIR
     Indication: CHRONIC HEPATITIS B
     Dosage: 0.5 MG, QD
     Route: 048
     Dates: start: 201005, end: 201010

REACTIONS (4)
  - Maternal exposure during pregnancy [Unknown]
  - Toxoplasma serology positive [Unknown]
  - Rubella in pregnancy [Unknown]
  - Alopecia [Unknown]

NARRATIVE: CASE EVENT DATE: 201005
